FAERS Safety Report 4682141-7 (Version None)
Quarter: 2005Q2

REPORT INFORMATION
  Report Type: 
  Country: None (occurrence: None)
  Receive Date: 20050603
  Receipt Date: 20050603
  Transmission Date: 20051028
  Serious: Yes (Hospitalization, Other)
  Sender: FDA-Public Use
  Company Number: None

PATIENT
  Age: 60 Year
  Sex: Female

DRUGS (2)
  1. CEFEPIME  1 GM IV Q 8  PRIOR TO ADMIT [Suspect]
     Dosage: 1 GM IV Q 8  PRIOR TO ADMIT
     Route: 042
  2. ARAVA [Concomitant]

REACTIONS (2)
  - BLOOD CREATININE INCREASED [None]
  - NEPHRITIS INTERSTITIAL [None]
